FAERS Safety Report 9979803 (Version 1)
Quarter: 2014Q1

REPORT INFORMATION
  Report Type: Report from Study
  Country: US (occurrence: US)
  Receive Date: 20140306
  Receipt Date: 20140306
  Transmission Date: 20141002
  Serious: No
  Sender: FDA-Public Use
  Company Number: US-ABBVIE-13P-163-1170655-00

PATIENT
  Age: 52 Year
  Sex: Female

DRUGS (4)
  1. HUMIRA [Suspect]
     Indication: PSORIASIS
     Route: 058
     Dates: start: 20130918
  2. ANTIBIOTICS [Suspect]
     Indication: RASH
  3. ANTIBIOTICS [Suspect]
     Indication: PYREXIA
  4. ANTIBIOTICS [Suspect]
     Indication: RASH MACULAR

REACTIONS (3)
  - Rash macular [Recovered/Resolved]
  - Rash [Recovered/Resolved]
  - Pyrexia [Recovered/Resolved]
